FAERS Safety Report 4691155-2 (Version None)
Quarter: 2005Q2

REPORT INFORMATION
  Report Type: 
  Country: None (occurrence: None)
  Receive Date: 20050610
  Receipt Date: 20050428
  Transmission Date: 20051028
  Serious: Yes (Hospitalization)
  Sender: FDA-Public Use
  Company Number: 2005065358

PATIENT
  Age: 64 Year
  Sex: Male
  Weight: 83.9154 kg

DRUGS (11)
  1. BEXTRA [Suspect]
     Indication: MUSCLE STRAIN
     Dosage: ORAL
     Route: 048
     Dates: start: 20030601, end: 20030701
  2. VITAMIN E [Concomitant]
  3. HYDROCHLOROTHIAZIDE [Concomitant]
  4. ATENOLOL [Concomitant]
  5. BENAZEPRIL HCL [Concomitant]
  6. SIMVASTATIN [Concomitant]
  7. OMEPRAZOLE [Concomitant]
  8. METFORMIN HCL [Concomitant]
  9. AMITRIPTYLINE HCL [Concomitant]
  10. ROBINUL FORTE (GLYCOPYRRONIUM BROMIDE) [Concomitant]
  11. MULTIVITAMIN [Concomitant]

REACTIONS (3)
  - MEASLES [None]
  - RASH GENERALISED [None]
  - VARICELLA [None]
